FAERS Safety Report 11896750 (Version 2)
Quarter: 2016Q1

REPORT INFORMATION
  Report Type: Report from Study
  Country: US (occurrence: US)
  Receive Date: 20160107
  Receipt Date: 20160127
  Transmission Date: 20160526
  Serious: Yes (Life-Threatening, Hospitalization)
  Sender: FDA-Public Use
  Company Number: US-ACTELION-A-NJ2015-126003

PATIENT
  Age: 81 Year
  Sex: Female

DRUGS (6)
  1. TRACLEER [Suspect]
     Active Substance: BOSENTAN
     Indication: PULMONARY ARTERIAL HYPERTENSION
     Dosage: 62.5 MG, BID
     Route: 048
     Dates: start: 20110811, end: 20120912
  2. RIOCIGUAT [Concomitant]
     Active Substance: RIOCIGUAT
  3. SILDENAFIL. [Concomitant]
     Active Substance: SILDENAFIL
  4. TRACLEER [Suspect]
     Active Substance: BOSENTAN
     Dosage: 125 MG, BID
     Route: 048
     Dates: start: 20120913
  5. VELETRI [Suspect]
     Active Substance: EPOPROSTENOL
     Indication: PULMONARY ARTERIAL HYPERTENSION
     Dosage: 5 NG/KG, PER MIN
     Route: 042
  6. VELETRI [Suspect]
     Active Substance: EPOPROSTENOL
     Dosage: 11 NG/KG, PER MIN
     Route: 042
     Dates: start: 20151112

REACTIONS (14)
  - Cardiac failure [Not Recovered/Not Resolved]
  - Pain [Unknown]
  - Localised intraabdominal fluid collection [Unknown]
  - Oedema [Unknown]
  - Sinus disorder [Unknown]
  - Decreased appetite [Unknown]
  - Fluid retention [Unknown]
  - Dyspnoea [Unknown]
  - Fatigue [Unknown]
  - Condition aggravated [Unknown]
  - Pulmonary arterial hypertension [Not Recovered/Not Resolved]
  - Headache [Unknown]
  - Catheter site related reaction [Unknown]
  - Generalised oedema [Not Recovered/Not Resolved]

NARRATIVE: CASE EVENT DATE: 20151009
